FAERS Safety Report 8209084-6 (Version None)
Quarter: 2012Q1

REPORT INFORMATION
  Report Type: 
  Country: None (occurrence: None)
  Receive Date: 20120314
  Receipt Date: 20120308
  Transmission Date: 20120608
  Serious: Yes (Other)
  Sender: FDA-Public Use
  Company Number: US-BAYER-2012-024119

PATIENT
  Age: 40 Year
  Sex: Female

DRUGS (10)
  1. DRYSOL [Concomitant]
     Dosage: 20%
     Route: 061
  2. MULTI-VITAMIN [Concomitant]
     Dosage: 1 DAILY
     Route: 048
  3. YAZ [Suspect]
     Indication: PRODUCT USED FOR UNKNOWN INDICATION
     Dosage: UNK
     Dates: start: 20080828
  4. IBUPROFEN [Concomitant]
     Dosage: UNK UNK, TID
     Route: 048
  5. NAPROSYN [Concomitant]
     Dosage: 500 MG, BID
  6. BEYAZ [Suspect]
     Indication: PRODUCT USED FOR UNKNOWN INDICATION
  7. CHONDROITIN W/GLUCOSAMINE/ METHYLSULFONYLEMETH. [Concomitant]
     Dosage: 1 DAILY
     Route: 048
  8. VICODIN [Concomitant]
     Dosage: UNK UNK, BID
     Route: 048
  9. ASCORBIC ACID [Concomitant]
     Dosage: 1 DAILY
     Route: 048
  10. VITAMIN D [Concomitant]
     Dosage: 1 DAILY
     Route: 048

REACTIONS (1)
  - DEEP VEIN THROMBOSIS [None]
